FAERS Safety Report 7248835-4 (Version None)
Quarter: 2011Q1

REPORT INFORMATION
  Report Type: 
  Country: None (occurrence: None)
  Receive Date: 20110121
  Receipt Date: 20110121
  Transmission Date: 20110831
  Serious: Yes (Hospitalization)
  Sender: FDA-Public Use
  Company Number: None

PATIENT
  Sex: Male
  Weight: 30.5 kg

DRUGS (5)
  1. CYTARABINE [Suspect]
     Dosage: 70 MG
  2. DAUNORUBICIN [Suspect]
     Dosage: 50 MG
  3. PEG-L-ASPARGINASE (K-H) [Suspect]
     Dosage: 2500 UNIT
  4. METHOTREXATE [Suspect]
     Dosage: 15 MG
  5. VINCRISTINE SULFATE [Suspect]
     Dosage: 3 MG

REACTIONS (11)
  - ABDOMINAL TENDERNESS [None]
  - DEPRESSED LEVEL OF CONSCIOUSNESS [None]
  - HYPERTENSION [None]
  - BRAIN DEATH [None]
  - ABDOMINAL PAIN [None]
  - UNRESPONSIVE TO STIMULI [None]
  - ABDOMINAL DISTENSION [None]
  - CONVULSION [None]
  - VOMITING [None]
  - HYPOTENSION [None]
  - PUPIL FIXED [None]
